FAERS Safety Report 7777626-0 (Version None)
Quarter: 2011Q3

REPORT INFORMATION
  Report Type: 
  Country: None (occurrence: None)
  Receive Date: 20110926
  Receipt Date: 20110914
  Transmission Date: 20111222
  Serious: Yes (Hospitalization, Other)
  Sender: FDA-Public Use
  Company Number: DE-UCBSA-041599

PATIENT
  Sex: Male

DRUGS (8)
  1. NEUPRO [Suspect]
     Dosage: 6 MG
     Route: 062
     Dates: end: 20110801
  2. STALEVO 100 [Concomitant]
     Dosage: DOSE INCREASE
     Dates: start: 20100101
  3. MADOPAR LT [Suspect]
     Dosage: 1 TABLET AS NEEDED
  4. RIVASTIGMINS [Concomitant]
     Dates: end: 20110801
  5. STALEVO 100 [Concomitant]
     Dates: end: 20100101
  6. NEUPRO [Suspect]
     Dosage: INCREASED TO 12 MG
     Route: 062
     Dates: start: 20110801
  7. RIVASTIGMINS [Concomitant]
     Dosage: INCREASED TO 6 MG
     Dates: start: 20110801
  8. STALEVO 100 [Concomitant]
     Dosage: 75/18, 75/200

REACTIONS (7)
  - RENAL FAILURE [None]
  - PARKINSONISM [None]
  - NEPHROGENIC ANAEMIA [None]
  - HALLUCINATION [None]
  - PSYCHIATRIC DECOMPENSATION [None]
  - DEMENTIA [None]
  - DIABETIC NEUROPATHY [None]
